FAERS Safety Report 15752962 (Version 1)
Quarter: 2018Q4

REPORT INFORMATION
  Report Type: Spontaneous
  Country: GB (occurrence: GB)
  Receive Date: 20181221
  Receipt Date: 20181221
  Transmission Date: 20190205
  Serious: Yes (Hospitalization)
  Sender: FDA-Public Use
  Company Number: GB-TEVA-2018-GB-989161

PATIENT
  Age: 71 Year
  Sex: Male
  Weight: 65 kg

DRUGS (5)
  1. OMEPRAZOLE. [Concomitant]
     Active Substance: OMEPRAZOLE
     Route: 065
  2. FOLIC ACID. [Concomitant]
     Active Substance: FOLIC ACID
     Route: 065
  3. RAMIPRIL. [Concomitant]
     Active Substance: RAMIPRIL
     Dosage: 1.25 MILLIGRAM DAILY;
     Route: 065
  4. METHOTREXATE. [Suspect]
     Active Substance: METHOTREXATE
     Indication: RHEUMATOID ARTHRITIS
     Dosage: STARTED YEARS BEFORE.
     Route: 065
     Dates: start: 20071101, end: 20080110
  5. METHOTREXATE. [Suspect]
     Active Substance: METHOTREXATE
     Dosage: STARTED YEARS BEFORE.
     Route: 065
     Dates: end: 200711

REACTIONS (7)
  - Hyponatraemia [Unknown]
  - Pyrexia [Unknown]
  - Bone marrow disorder [Unknown]
  - Pancytopenia [Recovered/Resolved]
  - Vomiting [Unknown]
  - Pneumocystis jirovecii pneumonia [Recovered/Resolved]
  - Neutropenia [Recovered/Resolved]

NARRATIVE: CASE EVENT DATE: 20080101
